FAERS Safety Report 19056771 (Version 1)
Quarter: 2021Q1

REPORT INFORMATION
  Report Type: Spontaneous
  Country: FI (occurrence: FI)
  Receive Date: 20210325
  Receipt Date: 20210325
  Transmission Date: 20210420
  Serious: Yes (Other)
  Sender: FDA-Public Use
  Company Number: FI-ROCHE-2797476

PATIENT
  Sex: Male

DRUGS (1)
  1. ROACTEMRA [Suspect]
     Active Substance: TOCILIZUMAB
     Indication: GIANT CELL ARTERITIS
     Dosage: RECEIVED ROACTEMRA IV TREATMENT 2 TIMES, ROACTEMRA WAS STOPPED AFTER DIAGNOSIS OF PROSTATE CANCER. T
     Route: 042

REACTIONS (2)
  - Prostate cancer [Unknown]
  - Off label use [Unknown]
